FAERS Safety Report 14338152 (Version 2)
Quarter: 2018Q1

REPORT INFORMATION
  Report Type: Spontaneous
  Country: US (occurrence: US)
  Receive Date: 20171229
  Receipt Date: 20180228
  Transmission Date: 20180509
  Serious: Yes (Hospitalization)
  Sender: FDA-Public Use
  Company Number: US-UNITED THERAPEUTICS-UNT-2017-018050

PATIENT
  Age: 68 Year
  Sex: Female
  Weight: 108.84 kg

DRUGS (1)
  1. ORENITRAM [Suspect]
     Active Substance: TREPROSTINIL
     Indication: PULMONARY ARTERIAL HYPERTENSION
     Dosage: 1 MG, BID
     Route: 048
     Dates: start: 20171016

REACTIONS (3)
  - Depression [Unknown]
  - Nausea [Unknown]
  - Road traffic accident [Unknown]

NARRATIVE: CASE EVENT DATE: 20171216
